FAERS Safety Report 19069998 (Version 4)
Quarter: 2021Q3

REPORT INFORMATION
  Report Type: Report from Study
  Country: US (occurrence: US)
  Receive Date: 20210329
  Receipt Date: 20210915
  Transmission Date: 20211014
  Serious: No
  Sender: FDA-Public Use
  Company Number: NVSC2021US071555

PATIENT
  Sex: Female

DRUGS (2)
  1. ENTRESTO [Suspect]
     Active Substance: SACUBITRIL\VALSARTAN
     Dosage: 0.5 DF, BID (24/26 MG)
     Route: 048
  2. ENTRESTO [Suspect]
     Active Substance: SACUBITRIL\VALSARTAN
     Indication: PRODUCT USED FOR UNKNOWN INDICATION
     Dosage: 0.5 DF, BID
     Route: 048

REACTIONS (7)
  - Gout [Unknown]
  - Blood uric acid increased [Unknown]
  - Wrong technique in product usage process [Unknown]
  - Dizziness postural [Unknown]
  - Hypotension [Unknown]
  - Blood glucose increased [Recovering/Resolving]
  - Dyspnoea [Not Recovered/Not Resolved]
